FAERS Safety Report 5112888-X (Version None)
Quarter: 2006Q3

REPORT INFORMATION
  Report Type: 
  Country: None (occurrence: None)
  Receive Date: 20060922
  Receipt Date: 20060814
  Transmission Date: 20061208
  Serious: Yes (Other)
  Sender: FDA-Public Use
  Company Number: US-ROCHE-459616

PATIENT

DRUGS (2)
  1. XELODA [Suspect]
     Indication: COLON CANCER
     Route: 048
     Dates: start: 20060715, end: 20060815
  2. OXALIPLATIN [Suspect]
     Indication: COLON CANCER
     Dosage: NO DOSING FREQUENCY REPORTED.
     Route: 065
     Dates: start: 20060715, end: 20060815

REACTIONS (3)
  - HYPERSENSITIVITY [None]
  - RASH [None]
  - STEVENS-JOHNSON SYNDROME [None]
